FAERS Safety Report 12284725 (Version 2)
Quarter: 2016Q3

REPORT INFORMATION
  Report Type: Spontaneous
  Country: US (occurrence: US)
  Receive Date: 20160420
  Receipt Date: 20160905
  Transmission Date: 20161109
  Serious: Yes (Other)
  Sender: FDA-Public Use
  Company Number: US-TEVA-644811USA

PATIENT
  Age: 30 Year
  Sex: Female

DRUGS (7)
  1. CHANTIX [Concomitant]
     Active Substance: VARENICLINE TARTRATE
  2. MELATONIN [Concomitant]
     Active Substance: MELATONIN
  3. MAGNESIUM [Concomitant]
     Active Substance: MAGNESIUM
  4. AMITIZA [Concomitant]
     Active Substance: LUBIPROSTONE
  5. ZECUITY [Suspect]
     Active Substance: SUMATRIPTAN SUCCINATE
     Indication: HEADACHE
     Route: 062
     Dates: start: 201602, end: 201602
  6. TRAMADOL. [Concomitant]
     Active Substance: TRAMADOL
  7. HYDROXYZINE [Concomitant]
     Active Substance: HYDROXYZINE\HYDROXYZINE HYDROCHLORIDE

REACTIONS (12)
  - Product adhesion issue [Unknown]
  - Application site paraesthesia [Recovered/Resolved]
  - Application site discolouration [Recovered/Resolved]
  - Application site warmth [Recovered/Resolved]
  - Application site burn [Recovered/Resolved]
  - Application site erythema [Recovered/Resolved]
  - Wrong technique in product usage process [Unknown]
  - Application site irritation [Recovered/Resolved]
  - Product leakage [Unknown]
  - Application site pruritus [Recovered/Resolved]
  - Application site urticaria [Recovered/Resolved]
  - Drug effect incomplete [Unknown]

NARRATIVE: CASE EVENT DATE: 201602
